FAERS Safety Report 17868900 (Version 1)
Quarter: 2020Q2

REPORT INFORMATION
  Report Type: Report from Study
  Country: None (occurrence: AT)
  Receive Date: 20200607
  Receipt Date: 20200607
  Transmission Date: 20200714
  Serious: Yes (Death)
  Sender: FDA-Public Use
  Company Number: AT-ABBVIE-20K-009-3433612-00

PATIENT
  Age: 73 Year
  Sex: Male

DRUGS (1)
  1. DUODOPA [Suspect]
     Active Substance: CARBIDOPA\LEVODOPA
     Indication: PARKINSON^S DISEASE
     Dosage: 16H THERAPY:?MD: 12ML, CR DAYTIME: 4.5ML/H, ED: 2ML?20 MG/ML 5 MG/ML
     Route: 050
     Dates: start: 20200603, end: 202006

REACTIONS (3)
  - Cardiac disorder [Fatal]
  - Pneumonia aspiration [Fatal]
  - Clostridial infection [Fatal]

NARRATIVE: CASE EVENT DATE: 202006
